FAERS Safety Report 15000132 (Version 1)
Quarter: 2018Q2

REPORT INFORMATION
  Report Type: Spontaneous
  Country: US (occurrence: US)
  Receive Date: 20180523
  Receipt Date: 20180523
  Transmission Date: 20180711
  Serious: Yes (Life-Threatening, Hospitalization)
  Sender: FDA-Public Use
  Company Number: None

PATIENT
  Age: 17 Year
  Sex: Female
  Weight: 81 kg

DRUGS (4)
  1. CALCIUM [Concomitant]
     Active Substance: CALCIUM
  2. AZITHROMYCIN ANHYDROUS. [Suspect]
     Active Substance: AZITHROMYCIN ANHYDROUS
     Indication: MULTIPLE ALLERGIES
     Dosage: ?          QUANTITY:6 TABLET(S);?
     Route: 048
     Dates: start: 20160628, end: 20160706
  3. VITAMIN D [Concomitant]
     Active Substance: CHOLECALCIFEROL
  4. REMICADE [Concomitant]
     Active Substance: INFLIXIMAB

REACTIONS (1)
  - Clostridium difficile colitis [None]

NARRATIVE: CASE EVENT DATE: 20171028
